FAERS Safety Report 10211695 (Version 1)
Quarter: 2014Q2

REPORT INFORMATION
  Report Type: Spontaneous
  Country: GB (occurrence: GB)
  Receive Date: 20140602
  Receipt Date: 20140602
  Transmission Date: 20141212
  Serious: Yes (Hospitalization)
  Sender: FDA-Public Use
  Company Number: GB-BIOMARINAP-GB-2014-103378

PATIENT
  Sex: Female
  Weight: 53.97 kg

DRUGS (1)
  1. ALDURAZYME [Suspect]
     Indication: MUCOPOLYSACCHARIDOSIS I
     Dosage: 5500 IU, QW
     Route: 042

REACTIONS (2)
  - Pneumonia [Unknown]
  - Exposure during pregnancy [Unknown]
